FAERS Safety Report 7383917-8 (Version None)
Quarter: 2011Q1

REPORT INFORMATION
  Report Type: 
  Country: None (occurrence: None)
  Receive Date: 20110330
  Receipt Date: 20110121
  Transmission Date: 20110831
  Serious: No
  Sender: FDA-Public Use
  Company Number: US-MYLANLABS-2011S1001665

PATIENT
  Age: 84 Year
  Sex: Male

DRUGS (2)
  1. MIRTAZAPINE [Concomitant]
     Indication: DEPRESSION
     Route: 048
  2. VENLAFAXINE HYDROCHLORIDE [Suspect]
     Indication: DEPRESSION
     Route: 048
     Dates: start: 20110101

REACTIONS (4)
  - CHILLS [None]
  - FEELING ABNORMAL [None]
  - FLUSHING [None]
  - ABDOMINAL DISCOMFORT [None]
